FAERS Safety Report 13736254 (Version 2)
Quarter: 2017Q3

REPORT INFORMATION
  Report Type: Spontaneous
  Country: US (occurrence: US)
  Receive Date: 20170710
  Receipt Date: 20170710
  Transmission Date: 20171127
  Serious: No
  Sender: FDA-Public Use
  Company Number: US-BAYER-2017-131574

PATIENT
  Age: 18 Year
  Sex: Female

DRUGS (1)
  1. MIDOL EXTENDED RELIEF [Suspect]
     Active Substance: NAPROXEN SODIUM
     Dosage: UNK
     Dates: start: 20170708, end: 20170708

REACTIONS (3)
  - Drug ineffective [Unknown]
  - Product use issue [None]
  - Dizziness [Unknown]

NARRATIVE: CASE EVENT DATE: 20170708
